FAERS Safety Report 6244523-1 (Version None)
Quarter: 2009Q2

REPORT INFORMATION
  Report Type: 
  Country: None (occurrence: None)
  Receive Date: 20090619
  Receipt Date: 20090521
  Transmission Date: 20091009
  Serious: No
  Sender: FDA-Public Use
  Company Number: ALL1-2009-01292

PATIENT
  Age: 58 Year
  Sex: Female
  Weight: 53.5 kg

DRUGS (6)
  1. VYVANSE [Suspect]
     Indication: ATTENTION DEFICIT/HYPERACTIVITY DISORDER
     Dosage: SEE IMAGE
     Route: 048
     Dates: start: 20090428, end: 20090501
  2. VYVANSE [Suspect]
     Indication: ATTENTION DEFICIT/HYPERACTIVITY DISORDER
     Dosage: SEE IMAGE
     Route: 048
     Dates: start: 20090501, end: 20090501
  3. VYVANSE [Suspect]
     Indication: ATTENTION DEFICIT/HYPERACTIVITY DISORDER
     Dosage: SEE IMAGE
     Route: 048
     Dates: start: 20090501, end: 20090509
  4. VYVANSE [Suspect]
     Indication: ATTENTION DEFICIT/HYPERACTIVITY DISORDER
     Dosage: SEE IMAGE
     Route: 048
     Dates: start: 20090520, end: 20090520
  5. PERCOCET /00446701/ (OXYCODONE HYDROCHLORIDE, OXYCODONE TEREPHTHALATE, [Concomitant]
  6. OXYCODONE AND ACETAMINOPHEN [Concomitant]

REACTIONS (4)
  - DRUG DIVERSION [None]
  - DRY MOUTH [None]
  - HEADACHE [None]
  - INSOMNIA [None]
